FAERS Safety Report 10200224 (Version 3)
Quarter: 2014Q2

REPORT INFORMATION
  Report Type: Spontaneous
  Country: US (occurrence: US)
  Receive Date: 20140527
  Receipt Date: 20140613
  Transmission Date: 20141212
  Serious: Yes (Hospitalization)
  Sender: FDA-Public Use
  Company Number: US-BAXTER-2014BAX012331

PATIENT
  Sex: Female

DRUGS (4)
  1. DIANEAL LOW CALCIUM [Suspect]
     Indication: RENAL FAILURE CHRONIC
     Route: 033
     Dates: start: 20140304, end: 20140304
  2. DIANEAL LOW CALCIUM [Suspect]
     Route: 033
  3. DIANEAL LOW CALCIUM [Suspect]
     Indication: PERITONEAL DIALYSIS
     Route: 033
  4. DIANEAL LOW CALCIUM [Suspect]
     Route: 033

REACTIONS (6)
  - Gastric disorder [Recovering/Resolving]
  - Adverse drug reaction [Recovering/Resolving]
  - Back disorder [Recovering/Resolving]
  - Urine output increased [Unknown]
  - Abdominal pain [Recovered/Resolved]
  - Procedural pain [Unknown]
